FAERS Safety Report 25746740 (Version 2)
Quarter: 2025Q4

REPORT INFORMATION
  Report Type: Report from Study
  Country: US (occurrence: US)
  Receive Date: 20250901
  Receipt Date: 20251003
  Transmission Date: 20260118
  Serious: Yes (Other)
  Sender: TEVA
  Company Number: US-TEVA-VS-3366169

PATIENT
  Weight: 68 kg

DRUGS (28)
  1. FLUOROURACIL [Suspect]
     Active Substance: FLUOROURACIL
     Indication: Adenocarcinoma pancreas
     Dosage: TIME INTERVAL: CYCLICAL
     Route: 042
     Dates: start: 20240812, end: 20240812
  2. FLUOROURACIL [Suspect]
     Active Substance: FLUOROURACIL
     Indication: Adenocarcinoma pancreas
     Dosage: TIME INTERVAL: CYCLICAL
     Route: 042
     Dates: start: 20240826, end: 20240826
  3. FLUOROURACIL [Suspect]
     Active Substance: FLUOROURACIL
     Indication: Adenocarcinoma pancreas
     Dosage: TIME INTERVAL: CYCLICAL
     Route: 042
     Dates: start: 20240909, end: 20240909
  4. FLUOROURACIL [Suspect]
     Active Substance: FLUOROURACIL
     Indication: Adenocarcinoma pancreas
     Dosage: TIME INTERVAL: CYCLICAL
     Route: 042
     Dates: start: 20240923, end: 20240923
  5. LEUCOVORIN [Suspect]
     Active Substance: LEUCOVORIN\LEUCOVORIN CALCIUM
     Indication: Adenocarcinoma pancreas
     Dosage: TIME INTERVAL: CYCLICAL
     Route: 042
     Dates: start: 20240812, end: 20240812
  6. LEUCOVORIN [Suspect]
     Active Substance: LEUCOVORIN\LEUCOVORIN CALCIUM
     Indication: Adenocarcinoma pancreas
     Dosage: TIME INTERVAL: CYCLICAL
     Route: 042
     Dates: start: 20240826, end: 20240826
  7. LEUCOVORIN [Suspect]
     Active Substance: LEUCOVORIN\LEUCOVORIN CALCIUM
     Indication: Adenocarcinoma pancreas
     Dosage: TIME INTERVAL: CYCLICAL
     Route: 042
     Dates: start: 20240909, end: 20240909
  8. LEUCOVORIN [Suspect]
     Active Substance: LEUCOVORIN\LEUCOVORIN CALCIUM
     Indication: Adenocarcinoma pancreas
     Dosage: TIME INTERVAL: CYCLICAL
     Route: 042
     Dates: start: 20240923, end: 20240923
  9. INTISMERAN AUTOGENE [Suspect]
     Active Substance: INTISMERAN AUTOGENE
     Indication: Adenocarcinoma pancreas
     Route: 030
     Dates: start: 20240812, end: 20240923
  10. Calcium Colecalciferol [Concomitant]
     Indication: Product used for unknown indication
     Dosage: ONGOING
     Dates: start: 2019
  11. ZOFRAN [Concomitant]
     Active Substance: ONDANSETRON HYDROCHLORIDE
     Indication: Product used for unknown indication
     Dosage: ONGOING
     Dates: start: 20240122
  12. VITAMINS [Concomitant]
     Active Substance: VITAMINS
     Indication: Product used for unknown indication
     Dosage: ONGOING
     Dates: start: 2015
  13. PRILOSEC [Concomitant]
     Active Substance: OMEPRAZOLE MAGNESIUM
     Indication: Product used for unknown indication
     Dosage: ONGOING
     Dates: start: 20211111
  14. ACETAMINOPHEN [Concomitant]
     Active Substance: ACETAMINOPHEN
     Indication: Product used for unknown indication
     Dosage: ONGOING
     Dates: start: 20240122
  15. COMPAZINE [Concomitant]
     Active Substance: PROCHLORPERAZINE MALEATE
     Indication: Product used for unknown indication
     Dosage: ONGOING
     Dates: start: 20240122
  16. IBUPROFEN [Concomitant]
     Active Substance: IBUPROFEN
     Indication: Product used for unknown indication
     Dosage: ONGOING
     Dates: start: 20240122
  17. B12 [Concomitant]
     Indication: Product used for unknown indication
     Dosage: ONGOING
     Dates: start: 20240403
  18. LISINOPRIL [Concomitant]
     Active Substance: LISINOPRIL
     Indication: Product used for unknown indication
     Dosage: ONGOING
     Dates: start: 20240405
  19. CREON [Concomitant]
     Active Substance: PANCRELIPASE AMYLASE\PANCRELIPASE LIPASE\PANCRELIPASE PROTEASE
     Indication: Product used for unknown indication
     Dosage: ONGOING
     Dates: start: 20240507
  20. SODIUM CHLORIDE [Concomitant]
     Active Substance: SODIUM CHLORIDE
     Indication: Product used for unknown indication
     Dates: start: 20240814, end: 20240815
  21. IRINOTECAN [Suspect]
     Active Substance: IRINOTECAN
     Indication: Adenocarcinoma pancreas
     Dosage: TIME INTERVAL: CYCLICAL
     Route: 042
     Dates: start: 20240812, end: 20240812
  22. IRINOTECAN [Suspect]
     Active Substance: IRINOTECAN
     Indication: Adenocarcinoma pancreas
     Dosage: TIME INTERVAL: CYCLICAL
     Route: 042
     Dates: start: 20240826, end: 20240826
  23. IRINOTECAN [Suspect]
     Active Substance: IRINOTECAN
     Indication: Adenocarcinoma pancreas
     Dosage: TIME INTERVAL: CYCLICAL
     Route: 042
     Dates: start: 20240909, end: 20240909
  24. IRINOTECAN [Suspect]
     Active Substance: IRINOTECAN
     Indication: Adenocarcinoma pancreas
     Dosage: TIME INTERVAL: CYCLICAL
     Route: 042
     Dates: start: 20240923, end: 20240923
  25. OXALIPLATIN [Suspect]
     Active Substance: OXALIPLATIN
     Indication: Adenocarcinoma pancreas
     Dosage: TIME INTERVAL: CYCLICAL
     Route: 042
     Dates: start: 20240812, end: 20240812
  26. OXALIPLATIN [Suspect]
     Active Substance: OXALIPLATIN
     Indication: Adenocarcinoma pancreas
     Dosage: TIME INTERVAL: CYCLICAL
     Route: 042
     Dates: start: 20240826, end: 20240826
  27. OXALIPLATIN [Suspect]
     Active Substance: OXALIPLATIN
     Indication: Adenocarcinoma pancreas
     Dosage: TIME INTERVAL: CYCLICAL
     Route: 042
     Dates: start: 20240909, end: 20240909
  28. OXALIPLATIN [Suspect]
     Active Substance: OXALIPLATIN
     Indication: Adenocarcinoma pancreas
     Dosage: TIME INTERVAL: CYCLICAL
     Route: 042
     Dates: start: 20240923, end: 20240923

REACTIONS (1)
  - Neutrophil count decreased [Recovered/Resolved]

NARRATIVE: CASE EVENT DATE: 20241007
